FAERS Safety Report 19077461 (Version 1)
Quarter: 2021Q1

REPORT INFORMATION
  Report Type: Spontaneous
  Country: US (occurrence: US)
  Receive Date: 20210330
  Receipt Date: 20210330
  Transmission Date: 20210420
  Serious: Yes (Other)
  Sender: FDA-Public Use
  Company Number: None

PATIENT
  Age: 24 Year
  Sex: Female
  Weight: 63.5 kg

DRUGS (1)
  1. GABAPENTIN. [Suspect]
     Active Substance: GABAPENTIN
     Indication: MULTIPLE SCLEROSIS
     Dosage: ?          OTHER FREQUENCY:2 QAM ;?
     Route: 048
     Dates: start: 2011

REACTIONS (5)
  - Skin irritation [None]
  - Erythema [None]
  - Diarrhoea [None]
  - Nausea [None]
  - Skin burning sensation [None]
